FAERS Safety Report 8447164-0 (Version None)
Quarter: 2012Q2

REPORT INFORMATION
  Report Type: 
  Country: None (occurrence: None)
  Receive Date: 20120619
  Receipt Date: 20120614
  Transmission Date: 20120825
  Serious: No
  Sender: FDA-Public Use
  Company Number: US-PFIZER INC-2012144019

PATIENT
  Sex: Female
  Weight: 72.1 kg

DRUGS (5)
  1. ZOLOFT [Suspect]
     Dosage: 50 MG, UNK
     Dates: start: 20120612, end: 20120614
  2. EFFEXOR [Suspect]
     Dosage: 37.5 MG, DAILY
     Dates: start: 20120101
  3. VERAPAMIL [Concomitant]
     Indication: BLOOD PRESSURE ABNORMAL
     Dosage: UNK
  4. EFFEXOR [Suspect]
     Indication: ANXIETY
     Dosage: 75 MG, DAILY
  5. EFFEXOR [Suspect]
     Dosage: UNK
     Dates: end: 20120612

REACTIONS (9)
  - AGITATION [None]
  - NIGHTMARE [None]
  - VOMITING [None]
  - MALAISE [None]
  - FEELING ABNORMAL [None]
  - FATIGUE [None]
  - INSOMNIA [None]
  - BLOOD POTASSIUM DECREASED [None]
  - VITAMIN D DECREASED [None]
